FAERS Safety Report 5177939-5 (Version None)
Quarter: 2006Q4

REPORT INFORMATION
  Report Type: 
  Country: None (occurrence: None)
  Receive Date: 20061218
  Receipt Date: 20060727
  Transmission Date: 20070319
  Serious: No
  Sender: FDA-Public Use
  Company Number: US-AMGEN-KDL188193

PATIENT
  Sex: Female

DRUGS (1)
  1. ENBREL [Suspect]
     Indication: RHEUMATOID ARTHRITIS
     Route: 058
     Dates: end: 20051026

REACTIONS (4)
  - DEPRESSION [None]
  - FOOT DEFORMITY [None]
  - HYPOAESTHESIA [None]
  - SELF-INJURIOUS IDEATION [None]
